FAERS Safety Report 5161527-0 (Version None)
Quarter: 2006Q4

REPORT INFORMATION
  Report Type: 
  Country: None (occurrence: None)
  Receive Date: 20061130
  Receipt Date: 20060901
  Transmission Date: 20070319
  Serious: No
  Sender: FDA-Public Use
  Company Number: US-GLAXOSMITHKLINE-A0618918A

PATIENT
  Age: 32 Year
  Sex: Female

DRUGS (2)
  1. WELLBUTRIN XL [Suspect]
     Dosage: 300MG PER DAY
     Route: 048
     Dates: start: 20060401, end: 20060830
  2. BIRTH CONTROL PILL [Concomitant]

REACTIONS (3)
  - FOOD CRAVING [None]
  - INSOMNIA [None]
  - WEIGHT INCREASED [None]
